FAERS Safety Report 5519015-5 (Version None)
Quarter: 2007Q4

REPORT INFORMATION
  Report Type: 
  Country: None (occurrence: None)
  Receive Date: 20071116
  Receipt Date: 20071105
  Transmission Date: 20080405
  Serious: Yes (Other)
  Sender: FDA-Public Use
  Company Number: DE-WYE-G00592607

PATIENT

DRUGS (2)
  1. VENLAFAXINE HCL [Suspect]
     Indication: OBSESSIVE THOUGHTS
     Route: 064
     Dates: start: 19950101, end: 20070101
  2. VENLAFAXINE HCL [Suspect]
     Indication: AFFECTIVE DISORDER
     Route: 064
     Dates: start: 20070101, end: 20070101

REACTIONS (2)
  - FOETAL GROWTH RETARDATION [None]
  - LOCALISED OEDEMA [None]
